FAERS Safety Report 4698721-9 (Version None)
Quarter: 2005Q2

REPORT INFORMATION
  Report Type: 
  Country: None (occurrence: None)
  Receive Date: 20050622
  Receipt Date: 20050603
  Transmission Date: 20051028
  Serious: No
  Sender: FDA-Public Use
  Company Number: SU-2005-003638

PATIENT
  Age: 44 Year
  Sex: Female
  Weight: 68.9467 kg

DRUGS (4)
  1. BENICAR HCT [Suspect]
     Indication: HYPERTENSION
     Dosage: 40.125 MG QD PO
     Route: 048
     Dates: end: 20050401
  2. BENICAR [Concomitant]
  3. ZYRTEC [Concomitant]
  4. ALLEGRA [Concomitant]

REACTIONS (3)
  - ASTHENIA [None]
  - HYPOAESTHESIA [None]
  - POLLAKIURIA [None]
